FAERS Safety Report 8121453-1 (Version None)
Quarter: 2012Q1

REPORT INFORMATION
  Report Type: 
  Country: None (occurrence: None)
  Receive Date: 20120208
  Receipt Date: 20120203
  Transmission Date: 20120608
  Serious: No
  Sender: FDA-Public Use
  Company Number: US-PFIZER INC-2012032045

PATIENT
  Sex: Female

DRUGS (1)
  1. XALKORI [Suspect]
     Indication: BRONCHIAL CARCINOMA
     Dosage: 250 MG, UNK
     Dates: start: 20111214

REACTIONS (4)
  - VISION BLURRED [None]
  - NAUSEA [None]
  - FATIGUE [None]
  - OEDEMA PERIPHERAL [None]
